FAERS Safety Report 7430581-5 (Version None)
Quarter: 2011Q2

REPORT INFORMATION
  Report Type: 
  Country: None (occurrence: None)
  Receive Date: 20110421
  Receipt Date: 20100722
  Transmission Date: 20111010
  Serious: No
  Sender: FDA-Public Use
  Company Number: US-ASTRAZENECA-2010SE30629

PATIENT
  Sex: Male

DRUGS (1)
  1. TOPROL-XL [Suspect]
     Route: 048

REACTIONS (7)
  - WEIGHT DECREASED [None]
  - MYALGIA [None]
  - GAIT DISTURBANCE [None]
  - STRESS [None]
  - POOR PERIPHERAL CIRCULATION [None]
  - PERIPHERAL COLDNESS [None]
  - FATIGUE [None]
